FAERS Safety Report 8168188-7 (Version None)
Quarter: 2012Q1

REPORT INFORMATION
  Report Type: 
  Country: None (occurrence: None)
  Receive Date: 20120227
  Receipt Date: 20120223
  Transmission Date: 20120608
  Serious: Yes (Death)
  Sender: FDA-Public Use
  Company Number: PHEH2012US004537

PATIENT
  Sex: Male

DRUGS (1)
  1. NEORAL [Suspect]
     Indication: LUNG TRANSPLANT
     Dosage: 125 MG, EVERY 12 HOURS
     Route: 048

REACTIONS (1)
  - COMPLICATIONS OF TRANSPLANTED LUNG [None]
